FAERS Safety Report 12647058 (Version 1)
Quarter: 2016Q3

REPORT INFORMATION
  Report Type: Spontaneous
  Country: US (occurrence: None)
  Receive Date: 20160811
  Receipt Date: 20160811
  Transmission Date: 20161109
  Serious: No
  Sender: FDA-Public Use
  Company Number: None

PATIENT
  Age: 43 Year
  Sex: Male
  Weight: 108.86 kg

DRUGS (1)
  1. ZECUITY [Suspect]
     Active Substance: SUMATRIPTAN SUCCINATE
     Indication: MIGRAINE
     Dosage: 4 PATCH(ES)   APPLIED AS MEDICATED PATCH TO SKIN
     Dates: start: 20150918, end: 20160511

REACTIONS (1)
  - Application site burn [None]

NARRATIVE: CASE EVENT DATE: 20160510
